FAERS Safety Report 16726268 (Version 1)
Quarter: 2019Q3

REPORT INFORMATION
  Report Type: Spontaneous
  Country: FR (occurrence: FR)
  Receive Date: 20190821
  Receipt Date: 20190821
  Transmission Date: 20191005
  Serious: Yes (Other)
  Sender: FDA-Public Use
  Company Number: US-BRAINTREE LABORATORIES-190460

PATIENT
  Age: 82 Year
  Sex: Male

DRUGS (1)
  1. EZICLEN [Suspect]
     Active Substance: MAGNESIUM SULFATE\POTASSIUM SULFATE\SODIUM SULFATE
     Route: 048
     Dates: start: 20190806, end: 20190807

REACTIONS (3)
  - Syncope [None]
  - Back injury [None]
  - Wound [None]

NARRATIVE: CASE EVENT DATE: 20190807
